FAERS Safety Report 7942065-6 (Version None)
Quarter: 2011Q4

REPORT INFORMATION
  Report Type: 
  Country: None (occurrence: None)
  Receive Date: 20111128
  Receipt Date: 20111128
  Transmission Date: 20120403
  Serious: Yes (Hospitalization)
  Sender: FDA-Public Use
  Company Number: None

PATIENT
  Age: 76 Year
  Weight: 86.182 kg

DRUGS (1)
  1. NEXIUM [Suspect]

REACTIONS (2)
  - ANAEMIA [None]
  - BLOOD IRON DECREASED [None]
